FAERS Safety Report 6759685-7 (Version None)
Quarter: 2010Q2

REPORT INFORMATION
  Report Type: 
  Country: None (occurrence: None)
  Receive Date: 20100608
  Receipt Date: 20100526
  Transmission Date: 20101027
  Serious: Yes (Other)
  Sender: FDA-Public Use
  Company Number: US-RB-010796-10

PATIENT
  Age: 60 Year
  Sex: Female

DRUGS (3)
  1. MUCINEX [Suspect]
     Dosage: TOOK MCUINEX FOR 7 DAYS
     Route: 048
     Dates: start: 20100513
  2. MUCINEX DM [Suspect]
     Dosage: TOOK 4 TABLETS WITHIN 24 HOURS
     Route: 048
     Dates: start: 20100520
  3. SYNTHROID [Concomitant]

REACTIONS (7)
  - ACCIDENTAL OVERDOSE [None]
  - DEPRESSED LEVEL OF CONSCIOUSNESS [None]
  - DIARRHOEA [None]
  - DIZZINESS [None]
  - INCORRECT DRUG ADMINISTRATION DURATION [None]
  - LOSS OF CONSCIOUSNESS [None]
  - NAUSEA [None]
